FAERS Safety Report 10371506 (Version 1)
Quarter: 2014Q1

REPORT INFORMATION
  Report Type: Spontaneous
  Country: US (occurrence: None)
  Receive Date: 20140306
  Receipt Date: 20140306
  Transmission Date: 20141002
  Serious: Yes (Hospitalization)
  Sender: FDA-Public Use
  Company Number: 163-21880-13010471

PATIENT
  Age: 89 Year
  Sex: Female
  Weight: 51.71 kg

DRUGS (6)
  1. REVLIMID [Suspect]
     Indication: PLASMA CELL MYELOMA
     Route: 048
     Dates: start: 20111023
  2. ALPHAGAN P (BRIMONIDINE TARTRATE) (.1 PERCENT, DROPS) [Concomitant]
  3. DEXAMETHASONE (DEXAMETHASONE) (UNKNOWN) [Concomitant]
  4. MILK OF MAGNESIA (MAGNESIUM HYDROXIDE) (UNKNOWN) [Concomitant]
  5. PRILOSEC (OMEPRAZOLE) (10 MILLIGRAM, CAPSULES) [Concomitant]
  6. VITAMIN B12 (CYANOCOBALAMIN) (UNKNOWN) [Concomitant]

REACTIONS (1)
  - Pneumonia [None]
